FAERS Safety Report 8484602-1 (Version None)
Quarter: 2012Q2

REPORT INFORMATION
  Report Type: 
  Country: None (occurrence: None)
  Receive Date: 20120625
  Receipt Date: 20120618
  Transmission Date: 20120825
  Serious: Yes (Other)
  Sender: FDA-Public Use
  Company Number: 2012-00129

PATIENT
  Age: 40 Year
  Sex: Female
  Weight: 88.4514 kg

DRUGS (1)
  1. ZICAM EXTREMEW CONGESTION RELIEF [Suspect]
     Indication: NASAL CONGESTION
     Dosage: SPRAYED INTO EACH NOSTRIL DAILY
     Dates: start: 20120420, end: 20120617

REACTIONS (4)
  - ERYTHEMA [None]
  - VOMITING [None]
  - INAPPROPRIATE SCHEDULE OF DRUG ADMINISTRATION [None]
  - FLUSHING [None]
